FAERS Safety Report 5778711-5 (Version None)
Quarter: 2008Q2

REPORT INFORMATION
  Report Type: 
  Country: None (occurrence: None)
  Receive Date: 20080618
  Receipt Date: 20080618
  Transmission Date: 20081010
  Serious: No
  Sender: FDA-Public Use
  Company Number: None

PATIENT
  Age: 41 Year
  Sex: Female
  Weight: 77.1115 kg

DRUGS (2)
  1. BUPROPION HCL [Suspect]
     Indication: DEPRESSION
     Dosage: 1 DAILY PO
     Route: 048
     Dates: start: 20080610, end: 20080617
  2. BUPROPION HCL [Suspect]
     Dosage: 1 DAILY PO
     Route: 048

REACTIONS (7)
  - AGITATION [None]
  - ANXIETY [None]
  - APATHY [None]
  - DRUG LEVEL FLUCTUATING [None]
  - FEAR [None]
  - PALPITATIONS [None]
  - THERAPEUTIC RESPONSE UNEXPECTED WITH DRUG SUBSTITUTION [None]
